FAERS Safety Report 14617695 (Version 1)
Quarter: 2018Q1

REPORT INFORMATION
  Report Type: Spontaneous
  Country: GB (occurrence: GB)
  Receive Date: 20180309
  Receipt Date: 20180309
  Transmission Date: 20180509
  Serious: Yes (Hospitalization)
  Sender: FDA-Public Use
  Company Number: GB-AUROBINDO-AUR-APL-2018-011909

PATIENT
  Age: 23 Year
  Sex: Female

DRUGS (1)
  1. TOPIRAMATE. [Suspect]
     Active Substance: TOPIRAMATE
     Indication: HEADACHE
     Dosage: 50 MILLIGRAM
     Route: 065

REACTIONS (4)
  - Blindness [Recovered/Resolved]
  - Angle closure glaucoma [Recovered/Resolved]
  - Headache [Recovered/Resolved]
  - Intraocular pressure increased [Recovered/Resolved]
